FAERS Safety Report 22039970 (Version 1)
Quarter: 2023Q1

REPORT INFORMATION
  Report Type: Spontaneous
  Country: FR (occurrence: FR)
  Receive Date: 20230227
  Receipt Date: 20230227
  Transmission Date: 20230418
  Serious: Yes (Hospitalization, Other)
  Sender: FDA-Public Use
  Company Number: FR-JNJFOC-20211059145

PATIENT
  Age: 70 Year
  Sex: Male
  Weight: 76 kg

DRUGS (13)
  1. PERINDOPRIL [Suspect]
     Active Substance: PERINDOPRIL
     Indication: Product used for unknown indication
     Dosage: UNK
     Route: 065
  2. EPOPROSTENOL [Suspect]
     Active Substance: EPOPROSTENOL
     Indication: Pulmonary arterial hypertension
     Dosage: UNK
     Route: 040
  3. SELEXIPAG [Suspect]
     Active Substance: SELEXIPAG
     Indication: Pulmonary arterial hypertension
     Dosage: 1000 MICROGRAM, UNK
     Route: 048
     Dates: start: 20211112
  4. SELEXIPAG [Suspect]
     Active Substance: SELEXIPAG
     Dosage: 1400 MICROGRAM, UNK
     Route: 048
     Dates: start: 20211126
  5. SELEXIPAG [Suspect]
     Active Substance: SELEXIPAG
     Dosage: 1600 MICROGRAM, UNK
     Route: 048
     Dates: start: 20211208
  6. SELEXIPAG [Suspect]
     Active Substance: SELEXIPAG
     Dosage: 200 MICROGRAM, UNK
     Route: 048
     Dates: start: 20211015
  7. SELEXIPAG [Suspect]
     Active Substance: SELEXIPAG
     Dosage: 800 MICROGRAM, UNK
     Route: 048
     Dates: start: 20211105
  8. SELEXIPAG [Suspect]
     Active Substance: SELEXIPAG
     Dosage: 400 MICROGRAM, UNK
     Route: 048
     Dates: start: 20211022
  9. SELEXIPAG [Suspect]
     Active Substance: SELEXIPAG
     Dosage: 1200 MICROGRAM, UNK
     Route: 048
     Dates: start: 20211119
  10. SELEXIPAG [Suspect]
     Active Substance: SELEXIPAG
     Dosage: 600 MICROGRAM, UNK
     Route: 048
     Dates: start: 20211029
  11. COVID-19 VACCINE [Concomitant]
     Indication: Product used for unknown indication
     Dosage: UNK
     Route: 065
     Dates: start: 20211215
  12. AMBRISENTAN [Concomitant]
     Active Substance: AMBRISENTAN
     Indication: Pulmonary arterial hypertension
     Dosage: UNK
     Route: 065
  13. TADALAFIL [Concomitant]
     Active Substance: TADALAFIL
     Indication: Pulmonary arterial hypertension
     Dosage: UNK
     Route: 065

REACTIONS (17)
  - Syncope [Recovered/Resolved]
  - Chills [Recovered/Resolved]
  - Muscular weakness [Unknown]
  - Blood pressure decreased [Not Recovered/Not Resolved]
  - Gastrooesophageal reflux disease [Recovered/Resolved]
  - Mood swings [Not Recovered/Not Resolved]
  - Dyspnoea [Recovering/Resolving]
  - Flushing [Not Recovered/Not Resolved]
  - Myalgia [Recovered/Resolved]
  - Oxygen saturation decreased [Recovering/Resolving]
  - Hot flush [Unknown]
  - Headache [Recovered/Resolved]
  - Fluid retention [Unknown]
  - Dyspnoea exertional [Recovered/Resolved]
  - Rash [Unknown]
  - Diarrhoea [Unknown]
  - Malaise [Unknown]

NARRATIVE: CASE EVENT DATE: 20211027
